FAERS Safety Report 24977283 (Version 1)
Quarter: 2025Q1

REPORT INFORMATION
  Report Type: Spontaneous
  Country: US (occurrence: US)
  Receive Date: 20250217
  Receipt Date: 20250217
  Transmission Date: 20250408
  Serious: No
  Sender: BAYER HEALTHCARE PHARMACEUTICALS INC.
  Company Number: US-BAYER-2025A019960

PATIENT
  Age: 29 Year
  Sex: Male

DRUGS (3)
  1. SORAFENIB [Suspect]
     Active Substance: SORAFENIB
     Indication: Desmoid tumour
  2. DOXORUBICIN HYDROCHLORIDE [Concomitant]
     Active Substance: DOXORUBICIN HYDROCHLORIDE
  3. NIROGACESTAT [Concomitant]
     Active Substance: NIROGACESTAT

REACTIONS (3)
  - Drug ineffective [None]
  - Product use in unapproved indication [None]
  - Product prescribing issue [None]
